FAERS Safety Report 21355791 (Version 6)
Quarter: 2023Q1

REPORT INFORMATION
  Report Type: Spontaneous
  Country: US (occurrence: US)
  Receive Date: 20220920
  Receipt Date: 20230127
  Transmission Date: 20230418
  Serious: Yes (Other)
  Sender: FDA-Public Use
  Company Number: US-PFIZER INC-202201167731

PATIENT
  Age: 77 Year
  Sex: Male
  Weight: 113.4 kg

DRUGS (4)
  1. VYNDAMAX [Suspect]
     Active Substance: TAFAMIDIS
     Indication: Amyloidosis
     Dosage: 61 MG, DAILY
     Route: 048
     Dates: start: 202201
  2. SPIRONOLACTONE [Concomitant]
     Active Substance: SPIRONOLACTONE
     Indication: Heart rate irregular
     Dosage: 50 MG 1 TABLET DAILY
     Dates: start: 2021
  3. TORSEMIDE [Concomitant]
     Active Substance: TORSEMIDE
     Indication: Heart rate irregular
     Dosage: 20 MG, 2X/DAY
  4. TORSEMIDE [Concomitant]
     Active Substance: TORSEMIDE
     Dosage: TAKE 2 IN THE MORNING INSTEAD OF TWICE DAILY

REACTIONS (9)
  - Implantable defibrillator insertion [Unknown]
  - Off label use [Not Recovered/Not Resolved]
  - Dyspnoea [Unknown]
  - Loss of personal independence in daily activities [Unknown]
  - Cardiac disorder [Unknown]
  - Fatigue [Unknown]
  - Somnolence [Unknown]
  - Asthenia [Unknown]
  - Drug ineffective for unapproved indication [Not Recovered/Not Resolved]

NARRATIVE: CASE EVENT DATE: 20220101
